FAERS Safety Report 6974628-9 (Version None)
Quarter: 2010Q3

REPORT INFORMATION
  Report Type: 
  Country: None (occurrence: None)
  Receive Date: 20100909
  Receipt Date: 20081223
  Transmission Date: 20110219
  Serious: No
  Sender: FDA-Public Use
  Company Number: US-WYE-H06967808

PATIENT
  Age: 56 Year
  Sex: Female
  Weight: 113.5 kg

DRUGS (4)
  1. PRISTIQ [Suspect]
     Indication: DEPRESSION
     Route: 048
     Dates: start: 20081103
  2. ZOLOFT [Concomitant]
     Dates: end: 20080101
  3. ZOLOFT [Concomitant]
     Dosage: TAPERING DOSE
     Dates: start: 20080101, end: 20080101
  4. ZOLOFT [Concomitant]
     Dates: start: 20080101

REACTIONS (3)
  - CONDITION AGGRAVATED [None]
  - MENOPAUSAL SYMPTOMS [None]
  - NIGHT SWEATS [None]
